FAERS Safety Report 18704831 (Version 1)
Quarter: 2021Q1

REPORT INFORMATION
  Report Type: Spontaneous
  Country: ES (occurrence: ES)
  Receive Date: 20210106
  Receipt Date: 20210106
  Transmission Date: 20210419
  Serious: Yes (Other)
  Sender: FDA-Public Use
  Company Number: ES-IPSEN BIOPHARMACEUTICALS, INC.-2018-08324

PATIENT
  Age: 49 Year
  Sex: Female

DRUGS (14)
  1. SOMATULINE AUTOGEL [Suspect]
     Active Substance: LANREOTIDE ACETATE
     Indication: PARAGANGLION NEOPLASM
     Dosage: 120 MG
     Route: 065
     Dates: start: 201309, end: 201402
  2. CYCLOPHOSPHAMIDE. [Suspect]
     Active Substance: CYCLOPHOSPHAMIDE
     Indication: PARAGANGLION NEOPLASM
     Route: 065
     Dates: start: 201305
  3. DENOSUMAB [Suspect]
     Active Substance: DENOSUMAB
     Route: 065
     Dates: start: 201509, end: 201703
  4. DACARBAZINE. [Suspect]
     Active Substance: DACARBAZINE
     Indication: PARAGANGLION NEOPLASM
     Route: 065
     Dates: start: 201305
  5. VINCRISTINE [Suspect]
     Active Substance: VINCRISTINE
     Dates: start: 201309, end: 201402
  6. CAPECITABINE. [Suspect]
     Active Substance: CAPECITABINE
     Indication: PARAGANGLION NEOPLASM
     Dosage: 750 MILLIGRAM/SQ. METRE, BID, ON DAYS 1?14
     Route: 065
  7. TEMOZOLOMIDE. [Suspect]
     Active Substance: TEMOZOLOMIDE
     Dosage: 75 MILLIGRAM/SQ. METER(21/28?DAY REGIMEN)
     Route: 065
     Dates: start: 201509, end: 201703
  8. CYCLOPHOSPHAMIDE. [Suspect]
     Active Substance: CYCLOPHOSPHAMIDE
     Dates: start: 201309, end: 201402
  9. SOMATULINE AUTOGEL [Suspect]
     Active Substance: LANREOTIDE ACETATE
     Dosage: 120 MG
     Route: 065
     Dates: start: 201509, end: 201703
  10. TEMOZOLOMIDE. [Suspect]
     Active Substance: TEMOZOLOMIDE
     Indication: PARAGANGLION NEOPLASM
     Dosage: ON DAYS 1?5 IN 28?DAY CYCLES)
     Route: 065
     Dates: end: 201507
  11. DENOSUMAB [Suspect]
     Active Substance: DENOSUMAB
     Indication: PARAGANGLION NEOPLASM
     Route: 065
     Dates: end: 201507
  12. DACARBAZINE. [Suspect]
     Active Substance: DACARBAZINE
     Dates: start: 201309, end: 201402
  13. VINCRISTINE [Suspect]
     Active Substance: VINCRISTINE
     Indication: PARAGANGLION NEOPLASM
     Route: 065
     Dates: start: 201305
  14. SOMATULINE AUTOGEL [Suspect]
     Active Substance: LANREOTIDE ACETATE
     Indication: OFF LABEL USE
     Dosage: 120 MG
     Route: 065
     Dates: start: 201402, end: 201507

REACTIONS (4)
  - Disease progression [Unknown]
  - Lymphopenia [Unknown]
  - Drug effective for unapproved indication [Unknown]
  - Off label use [Unknown]

NARRATIVE: CASE EVENT DATE: 201703
